FAERS Safety Report 10174252 (Version 2)
Quarter: 2014Q3

REPORT INFORMATION
  Report Type: Spontaneous
  Country: US (occurrence: US)
  Receive Date: 20140515
  Receipt Date: 20140801
  Transmission Date: 20150326
  Serious: Yes (Hospitalization, Other)
  Sender: FDA-Public Use
  Company Number: US-BAYER-2014-071715

PATIENT
  Age: 32 Year
  Sex: Female
  Weight: 73 kg

DRUGS (1)
  1. MIRENA [Suspect]
     Active Substance: LEVONORGESTREL
     Indication: CONTRACEPTION
     Dosage: 20 MCG/24HR, CONT
     Route: 015
     Dates: start: 20050609, end: 20060815

REACTIONS (11)
  - Cervix carcinoma [None]
  - Device dislocation [None]
  - Genital haemorrhage [None]
  - Device issue [None]
  - Medical device discomfort [None]
  - Pain [None]
  - Depression [None]
  - Medical device pain [None]
  - Anxiety [None]
  - Uterine perforation [None]
  - Injury [None]

NARRATIVE: CASE EVENT DATE: 200512
